FAERS Safety Report 14070625 (Version 3)
Quarter: 2017Q4

REPORT INFORMATION
  Report Type: Report from Study
  Country: JP (occurrence: JP)
  Receive Date: 20171011
  Receipt Date: 20171110
  Transmission Date: 20180321
  Serious: Yes (Hospitalization)
  Sender: FDA-Public Use
  Company Number: JP-AMGEN-JPNCT2016150499

PATIENT
  Age: 72 Year
  Sex: Male
  Weight: 49.8 kg

DRUGS (91)
  1. PANITUMUMAB [Suspect]
     Active Substance: PANITUMUMAB
     Dosage: 310 MG, Q2WK
     Route: 041
     Dates: start: 20170804, end: 20170818
  2. FLUOROURACIL. [Concomitant]
     Active Substance: FLUOROURACIL
     Indication: METASTASES TO LIVER
     Dosage: 3550 MG, Q2WEEKS
     Route: 041
     Dates: start: 20160915, end: 20160929
  3. FLUOROURACIL. [Concomitant]
     Active Substance: FLUOROURACIL
     Dosage: 3550 MG, Q2WEEKS
     Route: 041
     Dates: start: 20170106, end: 20170303
  4. FLUOROURACIL. [Concomitant]
     Active Substance: FLUOROURACIL
     Dosage: 550 MG, Q2WK
     Route: 040
     Dates: start: 20170623, end: 20170707
  5. FLUOROURACIL. [Concomitant]
     Active Substance: FLUOROURACIL
     Dosage: 550 MG, Q2WEEKS
     Route: 040
     Dates: start: 20170804, end: 20170818
  6. VONOPRAZAN FUMARATE [Concomitant]
     Active Substance: VONOPRAZAN FUMURATE
     Dosage: 20 MG, QD
     Route: 048
     Dates: start: 20171020
  7. PREGABALIN. [Concomitant]
     Active Substance: PREGABALIN
     Dosage: 75 MG, BID
     Route: 048
     Dates: end: 20170928
  8. LEVOFLOXACIN. [Concomitant]
     Active Substance: LEVOFLOXACIN
     Dosage: 500 MG, QD
     Route: 048
     Dates: end: 20170919
  9. NAPROXEN. [Concomitant]
     Active Substance: NAPROXEN
     Dosage: 100 MG, TID
     Route: 048
     Dates: start: 20171004, end: 20171009
  10. NAPROXEN. [Concomitant]
     Active Substance: NAPROXEN
     Dosage: 200 MG, TID
     Route: 048
     Dates: start: 20171014, end: 20171016
  11. FUROSEMIDE. [Concomitant]
     Active Substance: FUROSEMIDE
     Dosage: 40 MG, QD
     Route: 048
     Dates: start: 20171011, end: 20171012
  12. SULFAMETHOXAZOLE, TRIMETHOPRIM, BROMHEXINE HY [Concomitant]
     Dosage: 1 DF, QD
     Route: 048
     Dates: start: 20171016, end: 20171018
  13. SODIUM CHLORIDE. [Concomitant]
     Active Substance: SODIUM CHLORIDE
     Dosage: 300 ML, UNK
     Route: 041
     Dates: start: 20170920, end: 20170926
  14. SODIUM CHLORIDE. [Concomitant]
     Active Substance: SODIUM CHLORIDE
     Dosage: 100 ML, UNK
     Route: 041
     Dates: start: 20170923, end: 20170923
  15. METHYLPREDNISOLONE SODIUM SUCCINATE. [Concomitant]
     Active Substance: METHYLPREDNISOLONE SODIUM SUCCINATE
     Dosage: 500 MG, UNK
     Route: 041
     Dates: start: 20170929, end: 20171001
  16. OXALIPLATIN. [Concomitant]
     Active Substance: OXALIPLATIN
     Dosage: 140 MG, Q2WEEKS
     Route: 041
     Dates: start: 20170106, end: 20170303
  17. OXALIPLATIN. [Concomitant]
     Active Substance: OXALIPLATIN
     Dosage: 140 MG, Q2WEEKS
     Route: 041
     Dates: start: 20170331, end: 20170414
  18. CALCIUM LEVOFOLINATE [Concomitant]
     Active Substance: LEVOLEUCOVORIN CALCIUM
     Indication: COLON CANCER
     Dosage: 275 MG, Q2WEEKS
     Route: 041
     Dates: start: 20160915, end: 20160929
  19. FLUOROURACIL. [Concomitant]
     Active Substance: FLUOROURACIL
     Indication: COLON CANCER
     Dosage: 550 MG, Q2WK
     Route: 040
     Dates: start: 20160915, end: 20160929
  20. FLUOROURACIL. [Concomitant]
     Active Substance: FLUOROURACIL
     Dosage: 3550 MG, Q2WEEKS
     Route: 041
     Dates: start: 20170804, end: 20170818
  21. VONOPRAZAN FUMARATE [Concomitant]
     Active Substance: VONOPRAZAN FUMURATE
     Dosage: 20 MG, QD
     Route: 048
     Dates: start: 20170929, end: 20171003
  22. NAPROXEN. [Concomitant]
     Active Substance: NAPROXEN
     Dosage: 200 MG, TID
     Route: 048
     Dates: start: 20171003, end: 20171003
  23. NAPROXEN. [Concomitant]
     Active Substance: NAPROXEN
     Dosage: 100 MG, TID
     Route: 048
     Dates: start: 20171020
  24. FUROSEMIDE. [Concomitant]
     Active Substance: FUROSEMIDE
     Dosage: 20 MG, UNK
     Route: 042
     Dates: start: 20170929, end: 20171002
  25. PREDNISOLONE. [Concomitant]
     Active Substance: PREDNISOLONE
     Dosage: UNK UNK, BID
     Route: 048
     Dates: start: 20171020, end: 20171026
  26. SULFAMETHOXAZOLE, TRIMETHOPRIM, BROMHEXINE HY [Concomitant]
     Dosage: 1 DF, QD
     Route: 048
     Dates: start: 20171003, end: 20171008
  27. SULFAMETHOXAZOLE, TRIMETHOPRIM, BROMHEXINE HY [Concomitant]
     Dosage: 1 DF, QD
     Route: 048
     Dates: start: 20171010, end: 20171013
  28. SODIUM PICOSULFATE [Concomitant]
     Active Substance: SODIUM PICOSULFATE
     Indication: CONSTIPATION
     Dosage: 10 ML, UNK
     Route: 048
     Dates: start: 20171014, end: 20171014
  29. CARBOHYDRATES NOS W/POTASSIUM CHLORIDE/SODIUM [Concomitant]
     Dosage: 500 ML, UNK
     Route: 041
     Dates: start: 20170929, end: 20171002
  30. SODIUM CHLORIDE. [Concomitant]
     Active Substance: SODIUM CHLORIDE
     Dosage: 100 ML, UNK
     Route: 041
     Dates: start: 20170919, end: 20170921
  31. METAMIZOLE SODIUM MONOHYDRATE [Concomitant]
     Active Substance: METAMIZOLE SODIUM
     Dosage: 1 DF, UNK
     Route: 041
     Dates: start: 20170919, end: 20170921
  32. PANITUMUMAB [Suspect]
     Active Substance: PANITUMUMAB
     Dosage: 310 MG, Q2WK
     Route: 041
     Dates: start: 20161028, end: 20161209
  33. OXALIPLATIN. [Concomitant]
     Active Substance: OXALIPLATIN
     Indication: METASTASES TO LIVER
     Dosage: 140 MG, Q2WEEKS
     Route: 041
     Dates: start: 20161028, end: 20161209
  34. CALCIUM LEVOFOLINATE [Concomitant]
     Active Substance: LEVOLEUCOVORIN CALCIUM
     Dosage: 275 MG, Q2WEEKS
     Route: 041
     Dates: start: 20170512, end: 20170526
  35. FLUOROURACIL. [Concomitant]
     Active Substance: FLUOROURACIL
     Dosage: 3550 MG, Q2WEEKS
     Route: 041
     Dates: start: 20170623, end: 20170707
  36. MINOCYCLINE HYDROCHLORIDE. [Concomitant]
     Active Substance: MINOCYCLINE HYDROCHLORIDE
     Dosage: 100 MG, QD
     Route: 048
     Dates: end: 20171012
  37. FUROSEMIDE. [Concomitant]
     Active Substance: FUROSEMIDE
     Dosage: 20 MG, QD
     Route: 048
     Dates: start: 20171017, end: 20171017
  38. SPIRONOLACTONE. [Concomitant]
     Active Substance: SPIRONOLACTONE
     Dosage: 50 MG, QD
     Route: 048
     Dates: start: 20170926, end: 20171002
  39. SPIRONOLACTONE. [Concomitant]
     Active Substance: SPIRONOLACTONE
     Dosage: 50 MG, QD
     Route: 048
     Dates: start: 20171006, end: 20171010
  40. SPIRONOLACTONE. [Concomitant]
     Active Substance: SPIRONOLACTONE
     Dosage: 100 MG, QD
     Route: 048
     Dates: start: 20171014, end: 20171016
  41. SPIRONOLACTONE. [Concomitant]
     Active Substance: SPIRONOLACTONE
     Dosage: 50 MG, QD
     Route: 048
     Dates: start: 20171020
  42. SULFAMETHOXAZOLE, TRIMETHOPRIM, BROMHEXINE HY [Concomitant]
     Dosage: 1 DF, QD
     Route: 048
     Dates: start: 20171020
  43. PIPERACILLIN AND TAZOBACTAM [Concomitant]
     Active Substance: PIPERACILLIN SODIUM\TAZOBACTAM SODIUM
     Dosage: 2 DF, UNK
     Route: 041
     Dates: start: 20170919, end: 20170919
  44. METAMIZOLE SODIUM MONOHYDRATE [Concomitant]
     Active Substance: METAMIZOLE SODIUM
     Dosage: 1 DF, UNK
     Route: 041
     Dates: start: 20170923, end: 20170923
  45. PANITUMUMAB [Suspect]
     Active Substance: PANITUMUMAB
     Dosage: 310 MG, Q2WK
     Route: 041
     Dates: start: 20170106, end: 20170217
  46. PANITUMUMAB [Suspect]
     Active Substance: PANITUMUMAB
     Dosage: 310 MG, Q2WK
     Route: 041
     Dates: start: 20170414, end: 20170414
  47. PANITUMUMAB [Suspect]
     Active Substance: PANITUMUMAB
     Dosage: 310 MG, Q2WK
     Route: 041
     Dates: start: 20170623, end: 20170707
  48. CALCIUM LEVOFOLINATE [Concomitant]
     Active Substance: LEVOLEUCOVORIN CALCIUM
     Dosage: 275 MG, Q2WEEKS
     Route: 041
     Dates: start: 20170106, end: 20170303
  49. CALCIUM LEVOFOLINATE [Concomitant]
     Active Substance: LEVOLEUCOVORIN CALCIUM
     Dosage: 275 MG, Q2WEEKS
     Route: 041
     Dates: start: 20170331, end: 20170414
  50. CALCIUM LEVOFOLINATE [Concomitant]
     Active Substance: LEVOLEUCOVORIN CALCIUM
     Dosage: 275 MG, Q2WEEKS
     Route: 041
     Dates: start: 20170804, end: 20170818
  51. FLUOROURACIL. [Concomitant]
     Active Substance: FLUOROURACIL
     Dosage: 3550 MG, Q2WEEKS
     Route: 041
     Dates: start: 20170331, end: 20170414
  52. NAPROXEN. [Concomitant]
     Active Substance: NAPROXEN
     Dosage: 100 MG, TID
     Route: 048
     Dates: start: 20171017, end: 20171017
  53. FUROSEMIDE. [Concomitant]
     Active Substance: FUROSEMIDE
     Dosage: 20 MG, QD
     Route: 048
     Dates: start: 20171006, end: 20171010
  54. PREDNISOLONE. [Concomitant]
     Active Substance: PREDNISOLONE
     Dosage: 20 MG, BID
     Route: 048
     Dates: start: 20171009, end: 20171013
  55. SULFAMETHOXAZOLE, TRIMETHOPRIM, BROMHEXINE HY [Concomitant]
     Dosage: 2 DF, QD
     Route: 048
     Dates: start: 20171014, end: 20171015
  56. PIPERACILLIN AND TAZOBACTAM [Concomitant]
     Active Substance: PIPERACILLIN SODIUM\TAZOBACTAM SODIUM
     Dosage: 3 DF, UNK
     Route: 041
     Dates: start: 20170920, end: 20170926
  57. CALCIUM LEVOFOLINATE [Concomitant]
     Active Substance: LEVOLEUCOVORIN CALCIUM
     Indication: METASTASES TO LIVER
     Dosage: 275 MG, Q2WEEKS
     Route: 041
     Dates: start: 20161028, end: 20161209
  58. FLUOROURACIL. [Concomitant]
     Active Substance: FLUOROURACIL
     Dosage: 550 MG, Q2WK
     Route: 040
     Dates: start: 20170106, end: 20170303
  59. VONOPRAZAN FUMARATE [Concomitant]
     Active Substance: VONOPRAZAN FUMURATE
     Dosage: 40 MG, QD
     Route: 048
     Dates: start: 20171004, end: 20171005
  60. FUROSEMIDE. [Concomitant]
     Active Substance: FUROSEMIDE
     Dosage: 40 MG, QD
     Route: 048
     Dates: start: 20171014, end: 20171016
  61. SPIRONOLACTONE. [Concomitant]
     Active Substance: SPIRONOLACTONE
     Dosage: 100 MG, QD
     Route: 048
     Dates: start: 20171011, end: 20171012
  62. SPIRONOLACTONE. [Concomitant]
     Active Substance: SPIRONOLACTONE
     Dosage: 50 MG, QD
     Route: 048
     Dates: start: 20171017, end: 20171017
  63. PREDNISOLONE. [Concomitant]
     Active Substance: PREDNISOLONE
     Dosage: 30 MG, BID
     Route: 048
     Dates: start: 20171002, end: 20171008
  64. SODIUM CHLORIDE. [Concomitant]
     Active Substance: SODIUM CHLORIDE
     Dosage: 100 ML, UNK
     Route: 041
     Dates: start: 20170923, end: 20170923
  65. OXALIPLATIN. [Concomitant]
     Active Substance: OXALIPLATIN
     Indication: COLON CANCER
     Dosage: 140 MG, Q2WEEKS
     Route: 041
     Dates: start: 20160915, end: 20160929
  66. OXALIPLATIN. [Concomitant]
     Active Substance: OXALIPLATIN
     Dosage: 140 MG, Q2WEEKS
     Route: 041
     Dates: start: 20170623, end: 20170707
  67. FLUOROURACIL. [Concomitant]
     Active Substance: FLUOROURACIL
     Dosage: 550 MG, Q2WK
     Route: 040
     Dates: start: 20161028, end: 20161209
  68. FUROSEMIDE. [Concomitant]
     Active Substance: FUROSEMIDE
     Dosage: 20 MG, QD
     Route: 048
     Dates: start: 20170926, end: 20171002
  69. SPIRONOLACTONE. [Concomitant]
     Active Substance: SPIRONOLACTONE
     Dosage: 50 MG, QD
     Route: 048
     Dates: start: 20171013, end: 20171013
  70. PREDNISOLONE. [Concomitant]
     Active Substance: PREDNISOLONE
     Dosage: 35 MG, BID
     Route: 048
     Dates: start: 20171014, end: 20171015
  71. PANITUMUMAB [Suspect]
     Active Substance: PANITUMUMAB
     Indication: COLON CANCER
     Dosage: 310 MG, Q2WK
     Route: 041
     Dates: start: 20160915, end: 20160929
  72. OXALIPLATIN. [Concomitant]
     Active Substance: OXALIPLATIN
     Dosage: 140 MG, Q2WEEKS
     Route: 041
     Dates: start: 20170804, end: 20170818
  73. FLUOROURACIL. [Concomitant]
     Active Substance: FLUOROURACIL
     Dosage: 550 MG, Q2WK
     Route: 040
     Dates: start: 20170331, end: 20170414
  74. VONOPRAZAN FUMARATE [Concomitant]
     Active Substance: VONOPRAZAN FUMURATE
     Dosage: 20 MG, QD
     Route: 048
     Dates: start: 20171006, end: 20171013
  75. VONOPRAZAN FUMARATE [Concomitant]
     Active Substance: VONOPRAZAN FUMURATE
     Dosage: 40 MG, QD
     Route: 048
     Dates: start: 20171014, end: 20171016
  76. VONOPRAZAN FUMARATE [Concomitant]
     Active Substance: VONOPRAZAN FUMURATE
     Dosage: 20 MG, QD
     Route: 048
     Dates: start: 20171017, end: 20171017
  77. NAPROXEN. [Concomitant]
     Active Substance: NAPROXEN
     Dosage: 100 MG, TID
     Route: 048
     Dates: start: 20171011, end: 20171013
  78. FUROSEMIDE. [Concomitant]
     Active Substance: FUROSEMIDE
     Dosage: 20 MG, QD
     Route: 048
     Dates: start: 20171013, end: 20171013
  79. PANITUMUMAB [Suspect]
     Active Substance: PANITUMUMAB
     Dosage: 310 MG, Q2WK
     Route: 041
     Dates: start: 20170512, end: 20170526
  80. OXALIPLATIN. [Concomitant]
     Active Substance: OXALIPLATIN
     Dosage: 140 MG, Q2WEEKS
     Route: 041
     Dates: start: 20170512, end: 20170526
  81. CALCIUM LEVOFOLINATE [Concomitant]
     Active Substance: LEVOLEUCOVORIN CALCIUM
     Dosage: 275 MG, Q2WEEKS
     Route: 041
     Dates: start: 20170623, end: 20170707
  82. FLUOROURACIL. [Concomitant]
     Active Substance: FLUOROURACIL
     Dosage: 3550 MG, Q2WK
     Route: 041
     Dates: start: 20161028, end: 20161209
  83. FLUOROURACIL. [Concomitant]
     Active Substance: FLUOROURACIL
     Dosage: 550 MG, Q2WK
     Route: 040
     Dates: start: 20170512, end: 20170526
  84. FLUOROURACIL. [Concomitant]
     Active Substance: FLUOROURACIL
     Dosage: 3550 MG, Q2WEEKS
     Route: 041
     Dates: start: 20170512, end: 20170526
  85. NAPROXEN. [Concomitant]
     Active Substance: NAPROXEN
     Dosage: 100 MG, TID
     Route: 048
     Dates: start: 20170924, end: 20171002
  86. FUROSEMIDE. [Concomitant]
     Active Substance: FUROSEMIDE
     Dosage: 20 MG, QD
     Route: 048
     Dates: start: 20171020
  87. PREDNISOLONE. [Concomitant]
     Active Substance: PREDNISOLONE
     Dosage: 15 MG, BID
     Route: 048
     Dates: start: 20171016, end: 20171018
  88. SULFAMETHOXAZOLE, TRIMETHOPRIM, BROMHEXINE HY [Concomitant]
     Dosage: 2 DF, QD
     Route: 048
     Dates: start: 20171009, end: 20171009
  89. CARBOHYDRATES NOS W/POTASSIUM CHLORIDE/SODIUM [Concomitant]
     Dosage: 1000 ML, UNK
     Route: 041
     Dates: start: 20170919, end: 20170926
  90. SODIUM CHLORIDE. [Concomitant]
     Active Substance: SODIUM CHLORIDE
     Dosage: 200 ML, UNK
     Route: 041
     Dates: start: 20170919, end: 20170919
  91. ALBUMIN HUMAN [Concomitant]
     Active Substance: ALBUMIN HUMAN
     Dosage: 100 ML, UNK
     Route: 041
     Dates: start: 20170923, end: 20170925

REACTIONS (19)
  - Cholangitis [Recovering/Resolving]
  - Dermatitis acneiform [Not Recovered/Not Resolved]
  - Infusion site extravasation [Recovered/Resolved]
  - Decreased appetite [Recovered/Resolved]
  - Palmar-plantar erythrodysaesthesia syndrome [Not Recovered/Not Resolved]
  - Dermatitis acneiform [Recovered/Resolved]
  - Dry skin [Recovered/Resolved]
  - Neutrophil count decreased [Recovered/Resolved]
  - Fatigue [Recovered/Resolved]
  - Fatigue [Not Recovered/Not Resolved]
  - Palmar-plantar erythrodysaesthesia syndrome [Recovered/Resolved]
  - Dysgeusia [Recovered/Resolved]
  - Pyrexia [Recovered/Resolved]
  - Alopecia [Recovered/Resolved]
  - Stomatitis [Unknown]
  - Paronychia [Recovered/Resolved]
  - Peripheral sensory neuropathy [Not Recovered/Not Resolved]
  - Diarrhoea [Recovered/Resolved]
  - Dysgeusia [Not Recovered/Not Resolved]

NARRATIVE: CASE EVENT DATE: 20170919
